FAERS Safety Report 4929391-X (Version None)
Quarter: 2006Q1

REPORT INFORMATION
  Report Type: 
  Country: None (occurrence: None)
  Receive Date: 20060224
  Receipt Date: 20060208
  Transmission Date: 20060701
  Serious: Yes (Other)
  Sender: FDA-Public Use
  Company Number: DSA_27766_2006

PATIENT
  Age: 56 Year
  Sex: Female

DRUGS (1)
  1. TEMESTA [Suspect]
     Dosage: 1 MG Q DAY PO
     Route: 048
     Dates: start: 20041201, end: 20041201

REACTIONS (1)
  - ROAD TRAFFIC ACCIDENT [None]
